FAERS Safety Report 4865615-5 (Version None)
Quarter: 2005Q4

REPORT INFORMATION
  Report Type: 
  Country: None (occurrence: None)
  Receive Date: 20051220
  Receipt Date: 20051212
  Transmission Date: 20060501
  Serious: Yes (Other)
  Sender: FDA-Public Use
  Company Number: 2005166888

PATIENT
  Sex: Male

DRUGS (3)
  1. NEURONTIN [Suspect]
     Indication: PAIN
     Dosage: 2400 MG 1 D
  2. LYRICA [Suspect]
     Indication: BREAKTHROUGH PAIN
     Dosage: 2 IN 1 D
  3. OXYCONTIN [Concomitant]

REACTIONS (5)
  - BREAKTHROUGH PAIN [None]
  - HIP ARTHROPLASTY [None]
  - IRRITABILITY [None]
  - MOOD ALTERED [None]
  - SOMNOLENCE [None]
